FAERS Safety Report 4450825-1 (Version None)
Quarter: 2004Q3

REPORT INFORMATION
  Report Type: 
  Country: None (occurrence: None)
  Receive Date: 20040916
  Receipt Date: 20011002
  Transmission Date: 20050211
  Serious: Yes (Other)
  Sender: FDA-Public Use
  Company Number: US-BRISTOL-MYERS SQUIBB COMPANY-11035953

PATIENT
  Age: 42 Year
  Sex: Female

DRUGS (19)
  1. STADOL [Suspect]
     Indication: MIGRAINE
     Route: 045
     Dates: start: 19960101, end: 20011101
  2. STADOL [Suspect]
     Indication: MIGRAINE
  3. DARVOCET-N 100 [Concomitant]
     Dosage: AS NEEDED
  4. PREMARIN [Concomitant]
  5. LIPITOR [Concomitant]
  6. ASPIRIN [Concomitant]
  7. NEURONTIN [Concomitant]
  8. AMBIEN [Concomitant]
  9. CALAN [Concomitant]
  10. DEPAKOTE [Concomitant]
  11. ELAVIL [Concomitant]
  12. REMERON [Concomitant]
  13. PHENERGAN HCL [Concomitant]
  14. TEMAZEPAM [Concomitant]
  15. CELEBREX [Concomitant]
  16. ERYTHROMYCIN [Concomitant]
  17. ATENOLOL [Concomitant]
  18. CYCLOBENZAPRINE HCL [Concomitant]
  19. REGLAN [Concomitant]

REACTIONS (2)
  - DEPENDENCE [None]
  - DRUG WITHDRAWAL SYNDROME [None]
